FAERS Safety Report 10568886 (Version 2)
Quarter: 2015Q2

REPORT INFORMATION
  Report Type: Spontaneous
  Country: US (occurrence: US)
  Receive Date: 20141106
  Receipt Date: 20150421
  Transmission Date: 20150821
  Serious: Yes (Death, Hospitalization, Other)
  Sender: FDA-Public Use
  Company Number: US-009507513-1411USA001360

PATIENT
  Sex: Female
  Weight: 53.61 kg

DRUGS (2)
  1. JANUVIA [Suspect]
     Active Substance: SITAGLIPTIN PHOSPHATE
     Dosage: 100 MG, QD
     Route: 048
     Dates: start: 201109, end: 201210
  2. JANUVIA [Suspect]
     Active Substance: SITAGLIPTIN PHOSPHATE
     Indication: TYPE 2 DIABETES MELLITUS
     Dosage: 50 MG, QD
     Route: 048
     Dates: start: 201109, end: 201210

REACTIONS (3)
  - Pancreatic carcinoma [Unknown]
  - Laparoscopic surgery [Unknown]
  - Death [Fatal]

NARRATIVE: CASE EVENT DATE: 20121008
